FAERS Safety Report 7460045-4 (Version None)
Quarter: 2011Q2

REPORT INFORMATION
  Report Type: 
  Country: None (occurrence: None)
  Receive Date: 20110505
  Receipt Date: 20110425
  Transmission Date: 20111010
  Serious: Yes (Hospitalization, Other)
  Sender: FDA-Public Use
  Company Number: PHHY2011RU22239

PATIENT
  Age: 53 Year
  Sex: Male

DRUGS (3)
  1. TASIGNA [Suspect]
     Indication: CHRONIC MYELOID LEUKAEMIA
     Dosage: 800 MG, UNK
     Dates: end: 20110314
  2. LETIZEN [Concomitant]
     Indication: GYNAECOMASTIA
  3. DIMEXIDE [Concomitant]
     Indication: GYNAECOMASTIA

REACTIONS (9)
  - MUSCULOSKELETAL CHEST PAIN [None]
  - PULSE ABNORMAL [None]
  - CHRONIC MYELOID LEUKAEMIA [None]
  - BONE PAIN [None]
  - LYMPHADENITIS [None]
  - CHEST PAIN [None]
  - BODY TEMPERATURE INCREASED [None]
  - VOMITING [None]
  - PALLOR [None]
